FAERS Safety Report 22109348 (Version 1)
Quarter: 2023Q1

REPORT INFORMATION
  Report Type: Report from Study
  Country: CA (occurrence: CA)
  Receive Date: 20230317
  Receipt Date: 20230317
  Transmission Date: 20230418
  Serious: Yes (Hospitalization)
  Sender: FDA-Public Use
  Company Number: CA-BEH-2023156358

PATIENT
  Age: 60 Year
  Sex: Female
  Weight: 96.145 kg

DRUGS (13)
  1. HIZENTRA [Suspect]
     Active Substance: HUMAN IMMUNOGLOBULIN G
     Indication: Secondary immunodeficiency
     Dosage: 8 GRAM, QW
     Route: 065
     Dates: start: 20220207
  2. EDOXABAN TOSYLATE [Concomitant]
     Active Substance: EDOXABAN TOSYLATE
  3. PAROXETINE [Concomitant]
     Active Substance: PAROXETINE
  4. CALCIUM\CHOLECALCIFEROL [Concomitant]
     Active Substance: CALCIUM\CHOLECALCIFEROL
  5. BISOPROLOL [Concomitant]
     Active Substance: BISOPROLOL
  6. PANTOPRAZOLE [Concomitant]
     Active Substance: PANTOPRAZOLE
  7. CEFALEX [CEFALEXIN] [Concomitant]
  8. CLONIDINE [Concomitant]
     Active Substance: CLONIDINE
  9. PRAVASTATIN [Concomitant]
     Active Substance: PRAVASTATIN
  10. VIT D [VITAMIN D NOS] [Concomitant]
  11. PREGABALIN [Concomitant]
     Active Substance: PREGABALIN
  12. MORPHINE [Concomitant]
     Active Substance: MORPHINE
  13. CEFADROXIL [Concomitant]
     Active Substance: CEFADROXIL

REACTIONS (5)
  - Cellulite [Unknown]
  - Lymphatic disorder [Unknown]
  - Injection site swelling [Recovered/Resolved]
  - Skin fragility [Unknown]
  - Dermatitis contact [Unknown]

NARRATIVE: CASE EVENT DATE: 20230306
